FAERS Safety Report 21434978 (Version 1)
Quarter: 2022Q4

REPORT INFORMATION
  Report Type: Report from Study
  Country: RO (occurrence: RO)
  Receive Date: 20221010
  Receipt Date: 20221010
  Transmission Date: 20230112
  Serious: Yes (Hospitalization)
  Sender: FDA-Public Use
  Company Number: RO-ABBVIE-4146360

PATIENT
  Age: 65 Year
  Sex: Female

DRUGS (3)
  1. SKYRIZI [Suspect]
     Active Substance: RISANKIZUMAB-RZAA
     Indication: Psoriasis
     Route: 058
     Dates: start: 20210630, end: 20220713
  2. Noliprel [Concomitant]
     Indication: Hypertension
     Dosage: 1 TABLET
     Route: 048
  3. PROPOLIS WAX [Suspect]
     Active Substance: PROPOLIS WAX
     Indication: Arthropod bite
     Dosage: PROPOLIS TINCTURE CREAM
     Route: 061
     Dates: start: 20221004, end: 20221004

REACTIONS (5)
  - Arthropod bite [Recovering/Resolving]
  - Erythema [Recovering/Resolving]
  - Pain [Recovering/Resolving]
  - Product dose omission issue [Not Recovered/Not Resolved]
  - Swelling [Recovering/Resolving]

NARRATIVE: CASE EVENT DATE: 20221004
